FAERS Safety Report 4388186-9 (Version None)
Quarter: 2004Q3

REPORT INFORMATION
  Report Type: 
  Country: None (occurrence: None)
  Receive Date: 20040701
  Receipt Date: 20040623
  Transmission Date: 20050211
  Serious: Yes (Other)
  Sender: FDA-Public Use
  Company Number: PHEH2004US06865

PATIENT
  Age: 72 Year
  Sex: Male

DRUGS (2)
  1. ZOMETA [Suspect]
     Indication: PROSTATE CANCER METASTATIC
     Dosage: 4 MG MONTHLY
     Route: 042
  2. SODIUM PHOSPHATES [Concomitant]
     Indication: COLONOSCOPY

REACTIONS (3)
  - COLONOSCOPY [None]
  - HYPOCALCAEMIA [None]
  - TETANY [None]
